FAERS Safety Report 6684327-9 (Version None)
Quarter: 2010Q2

REPORT INFORMATION
  Report Type: 
  Country: None (occurrence: None)
  Receive Date: 20100416
  Receipt Date: 20100407
  Transmission Date: 20101027
  Serious: Yes (Other)
  Sender: FDA-Public Use
  Company Number: PHHY2010GB23056

PATIENT
  Age: 45 Year
  Weight: 34 kg

DRUGS (3)
  1. EXJADE [Suspect]
     Indication: IRON OVERLOAD
     Dosage: 750 MG, UNK
     Route: 048
     Dates: start: 20091023
  2. ALENDRONIC ACID [Concomitant]
     Dosage: UNK
  3. FOSAMAX [Concomitant]
     Dosage: UNK

REACTIONS (3)
  - ANAEMIA [None]
  - BLOOD PRODUCT TRANSFUSION DEPENDENT [None]
  - HAEMOGLOBIN DECREASED [None]
